FAERS Safety Report 11074681 (Version 1)
Quarter: 2015Q2

REPORT INFORMATION
  Report Type: Report from Study
  Country: US (occurrence: US)
  Receive Date: 20150429
  Receipt Date: 20150429
  Transmission Date: 20150821
  Serious: Yes (Hospitalization, Other)
  Sender: FDA-Public Use
  Company Number: US-BAYER-2015-179298

PATIENT
  Age: 84 Year
  Sex: Female

DRUGS (2)
  1. BACLOFEN. [Suspect]
     Active Substance: BACLOFEN
     Dosage: UNK
  2. BETASERON [Suspect]
     Active Substance: INTERFERON BETA-1B
     Indication: MULTIPLE SCLEROSIS
     Dosage: 8 MIU, QOD
     Route: 058
     Dates: start: 20080303, end: 20150322

REACTIONS (4)
  - Seizure [Recovered/Resolved]
  - Abasia [Recovered/Resolved]
  - Lethargy [Recovered/Resolved]
  - Overdose [None]

NARRATIVE: CASE EVENT DATE: 20150317
